FAERS Safety Report 5870743-1 (Version None)
Quarter: 2008Q3

REPORT INFORMATION
  Report Type: 
  Country: None (occurrence: None)
  Receive Date: 20080904
  Receipt Date: 20080826
  Transmission Date: 20090109
  Serious: Yes (Other)
  Sender: FDA-Public Use
  Company Number: US-JNJCH-2008022269

PATIENT
  Age: 4 Year
  Sex: Female
  Weight: 20.4 kg

DRUGS (1)
  1. LISTERINE VANILLA MINT [Suspect]
     Indication: ACCIDENTAL EXPOSURE
     Dosage: TEXT:UNKNOWN
     Route: 048

REACTIONS (4)
  - ACCIDENTAL EXPOSURE [None]
  - LOSS OF CONSCIOUSNESS [None]
  - NAUSEA [None]
  - WRONG DRUG ADMINISTERED [None]
